FAERS Safety Report 17647653 (Version 1)
Quarter: 2020Q2

REPORT INFORMATION
  Report Type: Report from Study
  Country: US (occurrence: US)
  Receive Date: 20200408
  Receipt Date: 20200408
  Transmission Date: 20200713
  Serious: Yes (Hospitalization)
  Sender: FDA-Public Use
  Company Number: US-ACTELION-A-NJ2019-195142

PATIENT
  Age: 87 Year
  Sex: Female
  Weight: 169 kg

DRUGS (2)
  1. XARELTO [Concomitant]
     Active Substance: RIVAROXABAN
  2. OPSUMIT [Suspect]
     Active Substance: MACITENTAN
     Indication: PULMONARY ARTERIAL HYPERTENSION
     Dosage: 10 MG, QD
     Route: 048
     Dates: start: 20171020

REACTIONS (7)
  - Colitis [Unknown]
  - Abdominal pain upper [Unknown]
  - Diverticulitis [Unknown]
  - Rhinorrhoea [Unknown]
  - Pulmonary oedema [Unknown]
  - Cardiac failure congestive [Unknown]
  - Head discomfort [Unknown]

NARRATIVE: CASE EVENT DATE: 20200221
